FAERS Safety Report 23358410 (Version 6)
Quarter: 2025Q1

REPORT INFORMATION
  Report Type: Report from Study
  Country: DE (occurrence: DE)
  Receive Date: 20240102
  Receipt Date: 20250117
  Transmission Date: 20250409
  Serious: Yes (Other)
  Sender: TAKEDA
  Company Number: DE-TAKEDA-2022TUS040597

PATIENT
  Age: 83 Year
  Sex: Female

DRUGS (47)
  1. TEDUGLUTIDE [Suspect]
     Active Substance: TEDUGLUTIDE
     Indication: Short-bowel syndrome
     Dosage: 4 MILLIGRAM, QD
     Dates: start: 20141022, end: 201802
  2. TEDUGLUTIDE [Suspect]
     Active Substance: TEDUGLUTIDE
     Dosage: 2 MILLIGRAM, QD
     Dates: start: 201802, end: 20180523
  3. TEDUGLUTIDE [Suspect]
     Active Substance: TEDUGLUTIDE
     Dosage: 999 MILLIGRAM, QD
     Dates: start: 20180523
  4. TEDUGLUTIDE [Suspect]
     Active Substance: TEDUGLUTIDE
  5. FALITHROM [Concomitant]
     Active Substance: PHENPROCOUMON
     Indication: Atrial fibrillation
  6. FALITHROM [Concomitant]
     Active Substance: PHENPROCOUMON
     Indication: Factor V Leiden mutation
  7. SPIRIVA [Concomitant]
     Active Substance: TIOTROPIUM BROMIDE MONOHYDRATE
     Indication: Chronic obstructive pulmonary disease
     Dosage: 1 DOSAGE FORM, QD
     Dates: start: 20220501
  8. DEVIT [Concomitant]
     Indication: Vitamin D deficiency
     Dosage: 0.06 MILLIGRAM, QD
     Dates: start: 202001
  9. MAGNESIUM [Concomitant]
     Active Substance: MAGNESIUM
     Indication: Magnesium deficiency
  10. CALCIMAGON D3 UNO [Concomitant]
     Indication: Mineral supplementation
     Dosage: UNK UNK, BID
     Dates: start: 2004, end: 2017
  11. CALCIMAGON D3 UNO [Concomitant]
     Indication: Blood calcium decreased
  12. Selenase [Concomitant]
     Indication: Supplementation therapy
     Dosage: 0.10 MILLIGRAM, QD
  13. PANTOPRAZOLE SODIUM [Concomitant]
     Active Substance: PANTOPRAZOLE SODIUM
     Indication: Hyperchlorhydria
     Dosage: 40 MILLIGRAM, BID
     Dates: start: 2004, end: 201803
  14. POTASSIUM CITRATE [Concomitant]
     Active Substance: POTASSIUM CITRATE
     Indication: Supplementation therapy
     Dosage: 780 MILLIGRAM, QD
     Dates: end: 2020
  15. TORSEMIDE [Concomitant]
     Active Substance: TORSEMIDE
     Indication: Hypertension
     Dosage: 10 MILLIGRAM, BID
     Dates: start: 201205
  16. AMLODIPINE [Concomitant]
     Active Substance: AMLODIPINE BESYLATE
     Indication: Hypertension
  17. LOPERAMIDE [Concomitant]
     Active Substance: LOPERAMIDE
     Indication: Diarrhoea
  18. LOPERAMIDE [Concomitant]
     Active Substance: LOPERAMIDE
  19. LOPERAMIDE [Concomitant]
     Active Substance: LOPERAMIDE
  20. Nac [Concomitant]
     Indication: Chronic obstructive pulmonary disease
     Dosage: 600 MILLIGRAM, QD
     Dates: start: 201709, end: 201810
  21. ELIQUIS [Concomitant]
     Active Substance: APIXABAN
     Indication: Anticoagulant therapy
     Dosage: UNK UNK, BID
     Dates: start: 201710, end: 2019
  22. BISOPROLOL [Concomitant]
     Active Substance: BISOPROLOL
     Indication: Hypertension
     Dosage: 2.50 MILLIGRAM, QD
     Dates: start: 201710
  23. SIMVASTATIN [Concomitant]
     Active Substance: SIMVASTATIN
     Indication: Hypercholesterolaemia
     Dosage: 20 MILLIGRAM, QD
     Dates: start: 201710
  24. PREDNISOLONE [Concomitant]
     Active Substance: PREDNISOLONE
     Indication: Chronic obstructive pulmonary disease
     Dosage: 10 MILLIGRAM, QOD
     Dates: start: 2017, end: 2017
  25. FUROSEMIDE [Concomitant]
     Active Substance: FUROSEMIDE
     Indication: Cardiac failure acute
  26. POTASSIUM [Concomitant]
     Active Substance: POTASSIUM
     Indication: Hypokalaemia
  27. FOLIC ACID [Concomitant]
     Active Substance: FOLIC ACID
     Indication: Hyperchromic anaemia
     Dosage: 5 MILLIGRAM, QD
     Dates: start: 201801
  28. APIXABAN [Concomitant]
     Active Substance: APIXABAN
     Indication: Atrial fibrillation
  29. APIXABAN [Concomitant]
     Active Substance: APIXABAN
  30. CHOLECALCIFEROL [Concomitant]
     Active Substance: CHOLECALCIFEROL
     Indication: Vitamin D deficiency
     Dosage: 20 MILLIGRAM, QD
     Dates: start: 201803
  31. CALCIUM CARBONATE [Concomitant]
     Active Substance: CALCIUM CARBONATE
     Indication: Mineral supplementation
     Dosage: 250 MILLIGRAM, TID
     Dates: end: 2020
  32. NALOXONE HYDROCHLORIDE\TILIDINE HYDROCHLORIDE [Concomitant]
     Active Substance: NALOXONE HYDROCHLORIDE\TILIDINE HYDROCHLORIDE
     Indication: Thoracic vertebral fracture
     Dosage: 100 MILLIGRAM, BID
     Dates: start: 201712, end: 2018
  33. CEFUROXIME [Concomitant]
     Active Substance: CEFUROXIME
     Indication: Erysipelas
     Dosage: 500 MILLIGRAM, BID
     Dates: start: 20171130, end: 201712
  34. OLODATEROL HYDROCHLORIDE\TIOTROPIUM BROMIDE MONOHYDRATE [Concomitant]
     Active Substance: OLODATEROL HYDROCHLORIDE\TIOTROPIUM BROMIDE MONOHYDRATE
     Indication: Chronic obstructive pulmonary disease
     Dosage: 2 DOSAGE FORM, BID
     Dates: start: 201709, end: 202205
  35. RAMIPRIL [Concomitant]
     Active Substance: RAMIPRIL
     Indication: Hypertension
  36. AMLODIPINE BESYLATE\OLMESARTAN MEDOXOMIL [Concomitant]
     Active Substance: AMLODIPINE BESYLATE\OLMESARTAN MEDOXOMIL
     Indication: Hypertension
  37. TRIMIPRAMINE [Concomitant]
     Active Substance: TRIMIPRAMINE
     Indication: Depression
  38. ESCITALOPRAM [Concomitant]
     Active Substance: ESCITALOPRAM OXALATE
     Indication: Hypothyroidism
  39. LEVOTHYROXINE SODIUM [Concomitant]
     Active Substance: LEVOTHYROXINE SODIUM
     Indication: Iron deficiency
  40. FERROUS GLUCONATE [Concomitant]
     Active Substance: FERROUS GLUCONATE
     Indication: Diarrhoea
  41. METAMIZOL [Concomitant]
     Active Substance: METAMIZOLE SODIUM
     Indication: Osteoporosis
  42. ASPIRIN [Concomitant]
     Active Substance: ASPIRIN
     Indication: Factor V Leiden mutation
     Dosage: 100 MILLIGRAM, QD
     Dates: start: 201803
  43. CALCIUM CARBONATE\CHOLECALCIFEROL [Concomitant]
     Active Substance: CALCIUM CARBONATE\CHOLECALCIFEROL
     Indication: Mineral supplementation
     Dosage: 1250 MILLIGRAM, TID
     Dates: start: 20190309
  44. CALCIUM CARBONATE\CHOLECALCIFEROL [Concomitant]
     Active Substance: CALCIUM CARBONATE\CHOLECALCIFEROL
     Indication: Blood calcium decreased
  45. CHOLECALCIFEROL [Concomitant]
     Active Substance: CHOLECALCIFEROL
     Indication: Vitamin supplementation
     Dosage: 0.03 MILLIGRAM, TID
     Dates: start: 20190309
  46. FOSFOMYCIN [Concomitant]
     Active Substance: FOSFOMYCIN
     Indication: Urinary tract infection
     Dosage: UNK UNK, SINGLE
     Dates: start: 201905, end: 201905
  47. MAGNO SANOL UNO [Concomitant]
     Indication: Magnesium deficiency
     Dosage: 150 MILLIGRAM, TID
     Dates: start: 20200115

REACTIONS (10)
  - Aortic stenosis [Not Recovered/Not Resolved]
  - Pulmonary valve incompetence [Not Recovered/Not Resolved]
  - Tricuspid valve incompetence [Not Recovered/Not Resolved]
  - Mitral valve incompetence [Not Recovered/Not Resolved]
  - Muscle spasms [Not Recovered/Not Resolved]
  - Dilatation atrial [Not Recovered/Not Resolved]
  - Mitral valve sclerosis [Not Recovered/Not Resolved]
  - Oesophageal pain [Not Recovered/Not Resolved]
  - Dysphagia [Not Recovered/Not Resolved]
  - Gamma-glutamyltransferase increased [Not Recovered/Not Resolved]

NARRATIVE: CASE EVENT DATE: 20220601
